FAERS Safety Report 8929156 (Version 1)
Quarter: 2012Q4

REPORT INFORMATION
  Report Type: 
  Country: US (occurrence: US)
  Receive Date: 20121128
  Receipt Date: 20121128
  Transmission Date: 20130627
  Serious: Yes (Other)
  Sender: FDA-Public Use
  Company Number: US-009507513-1211USA009547

PATIENT
  Age: 68 Year
  Sex: Male

DRUGS (4)
  1. PROVENTIL [Suspect]
     Indication: LUNG DISORDER
     Dosage: 2 DF, q6h
     Route: 055
     Dates: start: 20120701
  2. PROVENTIL [Suspect]
     Dosage: 1 DF, q6h
     Route: 055
  3. SYMBICORT [Concomitant]
     Dosage: UNK
     Dates: start: 20120701
  4. ALBUTEROL SULFATE [Concomitant]

REACTIONS (3)
  - Vocal cord paralysis [Unknown]
  - Oropharyngeal spasm [Recovered/Resolved]
  - Cough [Unknown]
